FAERS Safety Report 22045907 (Version 1)
Quarter: 2023Q1

REPORT INFORMATION
  Report Type: Spontaneous
  Country: CH (occurrence: CH)
  Receive Date: 20230228
  Receipt Date: 20230228
  Transmission Date: 20230418
  Serious: Yes (Hospitalization)
  Sender: FDA-Public Use
  Company Number: None

PATIENT
  Age: 66 Year
  Sex: Male

DRUGS (8)
  1. LORAZEPAM [Suspect]
     Active Substance: LORAZEPAM
     Indication: Schizophrenia
     Dosage: 1 MG EVERY 8 HOURS
     Route: 048
     Dates: start: 20221126
  2. PALIPERIDONE PALMITATE [Suspect]
     Active Substance: PALIPERIDONE PALMITATE
     Indication: Schizophrenia
     Dosage: 75 MG, IN TOTAL
     Route: 030
     Dates: start: 20221227, end: 20221227
  3. HALDOL [Suspect]
     Active Substance: HALOPERIDOL
     Indication: Schizophrenia
     Dosage: 5 MG EVERY 12 HOURS
     Route: 048
     Dates: start: 20221126
  4. HALDOL [Suspect]
     Active Substance: HALOPERIDOL
     Dosage: 2.5 MG, 2X/DAY
     Dates: start: 20221227, end: 20221227
  5. LISINOPRIL [Suspect]
     Active Substance: LISINOPRIL
     Indication: Hypertension
     Dosage: A GRADUAL INCREASE IN DOSE UP TO 15 MG/DAY
     Route: 048
     Dates: start: 20221215
  6. CHOLECALCIFEROL [Concomitant]
     Active Substance: CHOLECALCIFEROL
     Dosage: UNK
  7. BECOZYM [VITAMIN B NOS] [Concomitant]
     Dosage: UNK
  8. IRON POLYMALTOSE [Concomitant]
     Active Substance: IRON POLYMALTOSE
     Dosage: UNK

REACTIONS (2)
  - Hyponatraemia [Recovering/Resolving]
  - Inappropriate antidiuretic hormone secretion [Recovering/Resolving]

NARRATIVE: CASE EVENT DATE: 20221228
